FAERS Safety Report 6712094-9 (Version None)
Quarter: 2010Q2

REPORT INFORMATION
  Report Type: 
  Country: None (occurrence: None)
  Receive Date: 20100505
  Receipt Date: 20100428
  Transmission Date: 20101027
  Serious: Yes (Other)
  Sender: FDA-Public Use
  Company Number: GB-ABBOTT-10P-167-0641192-00

PATIENT
  Age: 7 Year
  Sex: Female

DRUGS (1)
  1. EPILIM TABLETS [Suspect]
     Indication: DRUG USE FOR UNKNOWN INDICATION
     Dates: start: 20100201

REACTIONS (2)
  - CONVULSION [None]
  - EXPIRED DRUG ADMINISTERED [None]
